FAERS Safety Report 15490018 (Version 3)
Quarter: 2019Q1

REPORT INFORMATION
  Report Type: Spontaneous
  Country: JP (occurrence: JP)
  Receive Date: 20181011
  Receipt Date: 20190123
  Transmission Date: 20190417
  Serious: Yes (Hospitalization)
  Sender: FDA-Public Use
  Company Number: JP-DSJP-DSJ-2018-143472

PATIENT

DRUGS (1)
  1. LIXIANA TABLETS 30MG [Suspect]
     Active Substance: EDOXABAN TOSYLATE
     Indication: ATRIAL FIBRILLATION
     Dosage: 30 MG, QD
     Route: 048

REACTIONS (2)
  - Cerebral artery occlusion [Recovered/Resolved with Sequelae]
  - Product dose omission [Unknown]

NARRATIVE: CASE EVENT DATE: 20170208
